FAERS Safety Report 4347026-4 (Version None)
Quarter: 2004Q1

REPORT INFORMATION
  Report Type: 
  Country: None (occurrence: None)
  Receive Date: 20040329
  Receipt Date: 20040213
  Transmission Date: 20041129
  Serious: No
  Sender: FDA-Public Use
  Company Number: USA040259392

PATIENT
  Age: 13 Year
  Sex: Male

DRUGS (3)
  1. SYMBYAX-OLANZAPINE 6MG / FLUOXETINE 25MG (OLANXAPIN [Suspect]
     Dosage: 1 DSG FORM/IN THE EVENING
     Dates: start: 20040123
  2. STRATTERA [Suspect]
     Dosage: 80 MG/DAY
  3. ZOLOFT [Concomitant]

REACTIONS (2)
  - FEELING OF RELAXATION [None]
  - MEDICATION ERROR [None]
